FAERS Safety Report 24069332 (Version 1)
Quarter: 2024Q3

REPORT INFORMATION
  Report Type: Spontaneous
  Country: JP (occurrence: JP)
  Receive Date: 20240710
  Receipt Date: 20240710
  Transmission Date: 20241016
  Serious: No
  Sender: ROCHE
  Company Number: JP-CHUGAI-2024003113

PATIENT
  Age: 6 Decade
  Sex: Male

DRUGS (2)
  1. PHESGO [Suspect]
     Active Substance: HYALURONIDASE-ZZXF\PERTUZUMAB\TRASTUZUMAB
     Indication: Colorectal cancer
     Dosage: 15 MILLILITER, QD
     Route: 058
     Dates: start: 20231226, end: 20231226
  2. PHESGO [Suspect]
     Active Substance: HYALURONIDASE-ZZXF\PERTUZUMAB\TRASTUZUMAB
     Dosage: 10 MILLILITER
     Route: 058
     Dates: start: 20240116

REACTIONS (1)
  - Injection site pain [Recovered/Resolved]
